FAERS Safety Report 6242223-5 (Version None)
Quarter: 2009Q2

REPORT INFORMATION
  Report Type: 
  Country: None (occurrence: None)
  Receive Date: 20090624
  Receipt Date: 20090616
  Transmission Date: 20091009
  Serious: Yes (Hospitalization)
  Sender: FDA-Public Use
  Company Number: AT-ALLERGAN-0908485US

PATIENT
  Age: 4 Year
  Sex: Male

DRUGS (2)
  1. TROSPIUM CHLORIDE [Suspect]
     Indication: DRUG USE FOR UNKNOWN INDICATION
     Dosage: UNK, SINGLE
     Route: 045
  2. TROSPIUM CHLORIDE [Suspect]
     Indication: ACCIDENTAL EXPOSURE

REACTIONS (5)
  - ACCIDENTAL DRUG INTAKE BY CHILD [None]
  - ACCOMMODATION DISORDER [None]
  - ERYTHEMA [None]
  - MYDRIASIS [None]
  - SINUS TACHYCARDIA [None]
